FAERS Safety Report 4598272-6 (Version None)
Quarter: 2005Q1

REPORT INFORMATION
  Report Type: 
  Country: None (occurrence: None)
  Receive Date: 20050304
  Receipt Date: 20041209
  Transmission Date: 20050727
  Serious: Yes (Hospitalization, Other)
  Sender: FDA-Public Use
  Company Number: US-AMGEN-US102450

PATIENT
  Age: 60 Year
  Sex: Female
  Weight: 112.6 kg

DRUGS (20)
  1. ARANESP [Suspect]
     Indication: HEPATITIS C
     Route: 058
     Dates: start: 20041103, end: 20041209
  2. PEG-INTRON [Suspect]
     Indication: HEPATITIS C
     Dates: end: 20041208
  3. PREMARIN [Concomitant]
  4. ASPIRIN [Concomitant]
  5. CYCLOBENZAPRINE HCL [Concomitant]
  6. SPIRONOLACTONE [Concomitant]
  7. RIBAVIRIN [Concomitant]
     Dates: end: 20041208
  8. AMARYL [Concomitant]
  9. RANITIDINE [Concomitant]
  10. MINOXIDIL [Concomitant]
  11. FUROSEMIDE [Concomitant]
  12. CRESTOR [Concomitant]
  13. ACTOS [Concomitant]
  14. ATENOLOL [Concomitant]
  15. METFORMIN [Concomitant]
  16. CELEBREX [Concomitant]
  17. MULTI-VITAMINS [Concomitant]
  18. VITRON-C [Concomitant]
  19. MIRAPEX [Concomitant]
  20. OXYCONTIN [Concomitant]

REACTIONS (8)
  - ANAEMIA [None]
  - BONE MARROW DEPRESSION [None]
  - CONDITION AGGRAVATED [None]
  - DIZZINESS [None]
  - DYSPNOEA EXERTIONAL [None]
  - HAEMOLYSIS [None]
  - IRON DEFICIENCY [None]
  - ORTHOSTATIC HYPOTENSION [None]
